FAERS Safety Report 24721764 (Version 4)
Quarter: 2025Q3

REPORT INFORMATION
  Report Type: Spontaneous
  Country: EU (occurrence: EU)
  Receive Date: 20241211
  Receipt Date: 20250715
  Transmission Date: 20251020
  Serious: Yes (Hospitalization, Other)
  Sender: MYLAN
  Company Number: EU-002147023-NVSC2024DE225614

PATIENT
  Age: 43 Year
  Sex: Male

DRUGS (36)
  1. FINGOLIMOD [Suspect]
     Active Substance: FINGOLIMOD
     Indication: Multiple sclerosis
  2. FINGOLIMOD [Suspect]
     Active Substance: FINGOLIMOD
     Route: 065
  3. FINGOLIMOD [Suspect]
     Active Substance: FINGOLIMOD
     Route: 065
  4. FINGOLIMOD [Suspect]
     Active Substance: FINGOLIMOD
  5. DIMETHYL FUMARATE [Suspect]
     Active Substance: DIMETHYL FUMARATE
     Indication: Relapsing-remitting multiple sclerosis
  6. DIMETHYL FUMARATE [Suspect]
     Active Substance: DIMETHYL FUMARATE
     Route: 065
  7. DIMETHYL FUMARATE [Suspect]
     Active Substance: DIMETHYL FUMARATE
     Route: 065
  8. DIMETHYL FUMARATE [Suspect]
     Active Substance: DIMETHYL FUMARATE
  9. KESIMPTA [Suspect]
     Active Substance: OFATUMUMAB
     Indication: Multiple sclerosis
  10. KESIMPTA [Suspect]
     Active Substance: OFATUMUMAB
  11. KESIMPTA [Suspect]
     Active Substance: OFATUMUMAB
     Route: 065
  12. KESIMPTA [Suspect]
     Active Substance: OFATUMUMAB
     Route: 065
  13. KESIMPTA [Suspect]
     Active Substance: OFATUMUMAB
     Route: 065
  14. KESIMPTA [Suspect]
     Active Substance: OFATUMUMAB
     Route: 065
  15. KESIMPTA [Suspect]
     Active Substance: OFATUMUMAB
  16. KESIMPTA [Suspect]
     Active Substance: OFATUMUMAB
  17. KESIMPTA [Suspect]
     Active Substance: OFATUMUMAB
     Route: 065
  18. KESIMPTA [Suspect]
     Active Substance: OFATUMUMAB
     Route: 065
  19. KESIMPTA [Suspect]
     Active Substance: OFATUMUMAB
  20. KESIMPTA [Suspect]
     Active Substance: OFATUMUMAB
  21. KESIMPTA [Suspect]
     Active Substance: OFATUMUMAB
  22. KESIMPTA [Suspect]
     Active Substance: OFATUMUMAB
  23. KESIMPTA [Suspect]
     Active Substance: OFATUMUMAB
     Route: 065
  24. KESIMPTA [Suspect]
     Active Substance: OFATUMUMAB
     Route: 065
  25. INTERFERON [Suspect]
     Active Substance: INTERFERON
     Indication: Relapsing-remitting multiple sclerosis
  26. INTERFERON [Suspect]
     Active Substance: INTERFERON
     Route: 065
  27. INTERFERON [Suspect]
     Active Substance: INTERFERON
     Route: 065
  28. INTERFERON [Suspect]
     Active Substance: INTERFERON
  29. OCRELIZUMAB [Suspect]
     Active Substance: OCRELIZUMAB
     Indication: Relapsing-remitting multiple sclerosis
  30. OCRELIZUMAB [Suspect]
     Active Substance: OCRELIZUMAB
     Route: 065
  31. OCRELIZUMAB [Suspect]
     Active Substance: OCRELIZUMAB
     Route: 065
  32. OCRELIZUMAB [Suspect]
     Active Substance: OCRELIZUMAB
  33. NATALIZUMAB [Concomitant]
     Active Substance: NATALIZUMAB
     Indication: Relapsing-remitting multiple sclerosis
  34. NATALIZUMAB [Concomitant]
     Active Substance: NATALIZUMAB
     Route: 065
  35. NATALIZUMAB [Concomitant]
     Active Substance: NATALIZUMAB
     Route: 065
  36. NATALIZUMAB [Concomitant]
     Active Substance: NATALIZUMAB

REACTIONS (11)
  - Gait disturbance [Recovering/Resolving]
  - Pyrexia [Recovering/Resolving]
  - Dizziness [Recovering/Resolving]
  - Neutropenia [Recovering/Resolving]
  - Infection [Recovering/Resolving]
  - Asthenia [Recovering/Resolving]
  - Leukopenia [Recovering/Resolving]
  - Vomiting [Recovering/Resolving]
  - Lymphopenia [Unknown]
  - Fungal infection [Unknown]
  - Drug ineffective [Unknown]
